FAERS Safety Report 8558706-9 (Version None)
Quarter: 2012Q3

REPORT INFORMATION
  Report Type: 
  Country: None (occurrence: None)
  Receive Date: 20120801
  Receipt Date: 20120723
  Transmission Date: 20120928
  Serious: Yes (Life-Threatening, Hospitalization)
  Sender: FDA-Public Use
  Company Number: US-MSD-1207USA011135

PATIENT

DRUGS (4)
  1. MARCUMAR [Interacting]
     Dosage: UNK, PRN
     Route: 048
  2. VERAPAMIL [Interacting]
     Dosage: 120 MG, TID
     Route: 048
  3. ZOCOR [Suspect]
  4. VERAPAMIL [Interacting]
     Dosage: 120 MG, BID
     Route: 048

REACTIONS (3)
  - RHABDOMYOLYSIS [None]
  - SKIN DISORDER [None]
  - TRANSAMINASES INCREASED [None]
